FAERS Safety Report 9366822 (Version 1)
Quarter: 2013Q2

REPORT INFORMATION
  Report Type: Spontaneous
  Country: FR (occurrence: None)
  Receive Date: 20130620
  Receipt Date: 20130620
  Transmission Date: 20140414
  Serious: Yes (Hospitalization)
  Sender: FDA-Public Use
  Company Number: SYM-2013-04907

PATIENT
  Age: 46 Year
  Sex: Male

DRUGS (13)
  1. 5 FU [Suspect]
     Indication: COLORECTAL CANCER METASTATIC
     Dosage: 756 MG, EVERY CYCLE, INTRAVENOUS BOLUS
     Route: 040
     Dates: start: 20130130, end: 20130130
  2. AFLIBERCEPT [Suspect]
     Dosage: 312 MG, EVERY CYCLE, INTRAVENOUS (NOT OTHERWISE SPECIFIED)
     Route: 042
     Dates: start: 20130130, end: 20130130
  3. IRINOTECAN [Suspect]
     Indication: COLORECTAL CANCER METASTATIC
     Dosage: 340 MG, EVERY CYCLE, INTRAVENOUS (NOT OTHERWISE SPECIFIED)
     Route: 042
     Dates: start: 20130130, end: 20130130
  4. LEUCOVORIN [Suspect]
     Indication: COLORECTAL CANCER METASTATIC
     Dosage: 756 MG, EVERY CYCLE, INTRAVENOUS (NOT OTHERWISE SPECIFIED)
     Route: 042
     Dates: start: 20130130, end: 20130130
  5. BISPHOSPHONATES ISPHOSPHONATES) [Concomitant]
  6. ANALGESICS ANALGESICS) [Concomitant]
  7. ANXIOLYTICS ANXIOLYTICS) [Concomitant]
  8. ANXIOLYTICS ANXIOLYTICS) [Concomitant]
  9. HEPARIN (HEPARIN)(HEPARIN) [Concomitant]
  10. SMECTA DIOSMECTITE)(DIOSMECTITE) [Concomitant]
  11. LOPERAMIDE LOPERAMIDE)(LOPERAMIDE) [Concomitant]
  12. ANTICHOLINERGIC AGENTS ANTICHOLINERGIC AGENTS) [Concomitant]
  13. ANTIEMETICS AND ANTINAUSEANTS (NTIEMETICS AND ANTINAUSEANTS) [Concomitant]

REACTIONS (1)
  - Diarrhoea [None]
